FAERS Safety Report 6420894-8 (Version None)
Quarter: 2009Q4

REPORT INFORMATION
  Report Type: 
  Country: None (occurrence: None)
  Receive Date: 20091030
  Receipt Date: 20091020
  Transmission Date: 20100525
  Serious: Yes (Hospitalization)
  Sender: FDA-Public Use
  Company Number: US-JNJFOC-20091000268

PATIENT
  Sex: Female
  Weight: 72.58 kg

DRUGS (6)
  1. LEVAQUIN [Suspect]
     Route: 048
     Dates: end: 20090320
  2. LEVAQUIN [Suspect]
     Indication: SINUSITIS
     Route: 048
     Dates: end: 20090320
  3. PREDNISONE [Suspect]
     Indication: BRONCHITIS
     Route: 065
     Dates: start: 20080101, end: 20090301
  4. MAXALT [Concomitant]
     Indication: MIGRAINE
     Route: 065
     Dates: start: 20030101
  5. ATENOLOL [Concomitant]
     Indication: MIGRAINE
     Route: 065
     Dates: start: 20080901
  6. AMITRIPTYLINE [Concomitant]
     Indication: MIGRAINE
     Route: 065
     Dates: start: 20080901

REACTIONS (3)
  - LIGAMENT RUPTURE [None]
  - MENISCUS LESION [None]
  - PAIN IN EXTREMITY [None]
